FAERS Safety Report 6548209-5 (Version None)
Quarter: 2010Q1

REPORT INFORMATION
  Report Type: 
  Country: None (occurrence: None)
  Receive Date: 20100124
  Receipt Date: 20090317
  Transmission Date: 20100710
  Serious: No
  Sender: FDA-Public Use
  Company Number: US-ALLERGAN-0903657US

PATIENT
  Age: 51 Year
  Sex: Female

DRUGS (5)
  1. RESTASIS [Suspect]
     Indication: DRY EYE
     Dosage: UNK, BID
     Route: 047
     Dates: start: 20090307
  2. RESTASIS [Suspect]
     Indication: CORNEAL OEDEMA
  3. CLARINEX [Concomitant]
  4. CRESTOR [Concomitant]
  5. ANTIBIOTICS [Concomitant]
     Indication: SINUSITIS

REACTIONS (2)
  - LACRIMATION INCREASED [None]
  - OCULAR HYPERAEMIA [None]
